FAERS Safety Report 5951999-3 (Version None)
Quarter: 2008Q4

REPORT INFORMATION
  Report Type: 
  Country: None (occurrence: None)
  Receive Date: 20081113
  Receipt Date: 20071101
  Transmission Date: 20090506
  Serious: No
  Sender: FDA-Public Use
  Company Number: A0691031A

PATIENT
  Sex: Male

DRUGS (16)
  1. COREG [Suspect]
     Dosage: 3.25MG UNKNOWN
     Route: 048
     Dates: start: 20050101, end: 20070701
  2. COREG CR [Suspect]
     Dosage: 80MG PER DAY
     Route: 048
     Dates: start: 20070701
  3. BENADRYL [Concomitant]
  4. PRILOSEC [Concomitant]
  5. TYLENOL [Concomitant]
  6. SAW PALMETTO [Concomitant]
  7. FISH OIL [Concomitant]
  8. NIACIN [Concomitant]
  9. SPIRONOLACTONE [Concomitant]
  10. FUROSEMIDE [Concomitant]
  11. PLAVIX [Concomitant]
  12. ENALAPRIL MALEATE [Concomitant]
  13. SIMVASTATIN [Concomitant]
  14. OMEPRAZOLE [Concomitant]
  15. FLUTICASONE PROPIONATE [Concomitant]
  16. ASPIRIN [Concomitant]

REACTIONS (5)
  - DIZZINESS [None]
  - DYSPNOEA [None]
  - FATIGUE [None]
  - GASTROOESOPHAGEAL REFLUX DISEASE [None]
  - SOMNOLENCE [None]
